FAERS Safety Report 22177799 (Version 1)
Quarter: 2023Q2

REPORT INFORMATION
  Report Type: Spontaneous
  Country: US (occurrence: US)
  Receive Date: 20230405
  Receipt Date: 20230405
  Transmission Date: 20230721
  Serious: No
  Sender: FDA-Public Use
  Company Number: US-SA-SAC20230330000733

PATIENT

DRUGS (1)
  1. LARONIDASE [Suspect]
     Active Substance: LARONIDASE
     Indication: Mucopolysaccharidosis I
     Dosage: 8.7(UNITS NOT PROVIDED) , QW
     Route: 042
     Dates: start: 20221208, end: 2023

REACTIONS (3)
  - Vein disorder [Unknown]
  - COVID-19 [Unknown]
  - Developmental delay [Unknown]
